FAERS Safety Report 19592858 (Version 1)
Quarter: 2021Q3

REPORT INFORMATION
  Report Type: Spontaneous
  Country: US (occurrence: US)
  Receive Date: 20210722
  Receipt Date: 20210722
  Transmission Date: 20211014
  Serious: No
  Sender: FDA-Public Use
  Company Number: US-KARYOPHARM-2021KPT000768

PATIENT

DRUGS (3)
  1. XPOVIO [Suspect]
     Active Substance: SELINEXOR
     Indication: PRODUCT USED FOR UNKNOWN INDICATION
     Dosage: 100 MG, WEEKLY
     Route: 048
     Dates: start: 202103, end: 20210601
  2. BORTEZOMIB. [Concomitant]
     Active Substance: BORTEZOMIB
  3. DEXAMETHASONE. [Concomitant]
     Active Substance: DEXAMETHASONE
     Dosage: UNK, WEEKLY

REACTIONS (1)
  - Drug ineffective [Unknown]

NARRATIVE: CASE EVENT DATE: 202105
